FAERS Safety Report 7190658-9 (Version None)
Quarter: 2010Q4

REPORT INFORMATION
  Report Type: 
  Country: None (occurrence: None)
  Receive Date: 20101221
  Receipt Date: 20101221
  Transmission Date: 20110411
  Serious: No
  Sender: FDA-Public Use
  Company Number: None

PATIENT
  Age: 74 Year
  Sex: Female
  Weight: 83.9154 kg

DRUGS (2)
  1. LOSARTAN POTASSIUM [Suspect]
     Indication: HYPERTENSION
     Dosage: 1 PILL ONCE A DAY
     Dates: start: 20100615, end: 20101217
  2. COZAAR [Suspect]

REACTIONS (5)
  - BLOOD PRESSURE INCREASED [None]
  - BLOOD THYROID STIMULATING HORMONE ABNORMAL [None]
  - CYSTITIS [None]
  - HEADACHE [None]
  - PRODUCT SUBSTITUTION ISSUE [None]
